FAERS Safety Report 7264782-6 (Version None)
Quarter: 2011Q1

REPORT INFORMATION
  Report Type: 
  Country: None (occurrence: None)
  Receive Date: 20110131
  Receipt Date: 20110119
  Transmission Date: 20110831
  Serious: Yes (Other)
  Sender: FDA-Public Use
  Company Number: GB-RANBAXY-2011R1-41308

PATIENT
  Age: 17 Year
  Sex: Female
  Weight: 59 kg

DRUGS (8)
  1. AMOXICILLIN [Suspect]
     Indication: URINARY TRACT INFECTION
     Dosage: 500 MG, TID
     Route: 048
     Dates: start: 20091222
  2. CERVARIX [Suspect]
     Indication: PROPHYLAXIS
     Dosage: 1 DF, QD
     Route: 030
     Dates: start: 20091101, end: 20091101
  3. DIAZEPAM [Suspect]
     Indication: SEDATION
     Dosage: 2 MG, TID
     Route: 048
     Dates: start: 20091013, end: 20091016
  4. FOLIC ACID [Concomitant]
     Indication: PREGNANCY
     Dosage: 400 UG, QD
     Route: 048
     Dates: start: 20091211
  5. CLOTRIMAZOLE [Suspect]
     Indication: CANDIDIASIS
     Dosage: UNK
     Route: 065
     Dates: start: 20091215
  6. ALBUTEROL [Concomitant]
     Indication: ASTHMA
     Dosage: UNK
     Route: 055
     Dates: start: 20060101
  7. NORDETTE-28 [Concomitant]
     Indication: CONTRACEPTION
     Dosage: UNK
     Route: 048
     Dates: start: 20080101
  8. CLENIL MODULITE [Concomitant]
     Indication: ASTHMA
     Dosage: 250 UG, BID
     Route: 055
     Dates: start: 20070101

REACTIONS (2)
  - DRUG EXPOSURE DURING PREGNANCY [None]
  - ABORTION SPONTANEOUS [None]
